FAERS Safety Report 5189780-8 (Version None)
Quarter: 2006Q4

REPORT INFORMATION
  Report Type: 
  Country: None (occurrence: None)
  Receive Date: 20061218
  Receipt Date: 20061204
  Transmission Date: 20070319
  Serious: Yes (Hospitalization)
  Sender: FDA-Public Use
  Company Number: 2006AL003788

PATIENT
  Age: 52 Year
  Sex: Female

DRUGS (1)
  1. PROPYLTHIOURACIL [Suspect]
     Indication: BASEDOW'S DISEASE

REACTIONS (5)
  - GOITRE [None]
  - LEUKOCYTOCLASTIC VASCULITIS [None]
  - PURULENCE [None]
  - PYODERMA GANGRENOSUM [None]
  - SCAR [None]
